FAERS Safety Report 6010217-0 (Version None)
Quarter: 2008Q4

REPORT INFORMATION
  Report Type: 
  Country: None (occurrence: None)
  Receive Date: 20081218
  Receipt Date: 20071126
  Transmission Date: 20090506
  Serious: No
  Sender: FDA-Public Use
  Company Number: A0697065A

PATIENT
  Sex: Female

DRUGS (1)
  1. FLONASE [Suspect]
     Indication: DRUG USE FOR UNKNOWN INDICATION

REACTIONS (2)
  - DISCOMFORT [None]
  - PRODUCT QUALITY ISSUE [None]
